FAERS Safety Report 10458927 (Version 2)
Quarter: 2014Q4

REPORT INFORMATION
  Report Type: Spontaneous
  Country: FR (occurrence: FR)
  Receive Date: 20140917
  Receipt Date: 20141110
  Transmission Date: 20150528
  Serious: Yes (Death, Other)
  Sender: FDA-Public Use
  Company Number: FR-ELI_LILLY_AND_COMPANY-FR201409004345

PATIENT

DRUGS (3)
  1. GEMCITABINE HYDROCHLORIDE. [Suspect]
     Active Substance: GEMCITABINE HYDROCHLORIDE
     Indication: NON-SMALL CELL LUNG CANCER
     Dosage: 1250 MG/M2, CYCLICAL
     Route: 065
  2. INIPARIB [Suspect]
     Active Substance: INIPARIB
     Indication: NON-SMALL CELL LUNG CANCER
     Dosage: 5.6 MG/KG, CYCLICAL
     Route: 042
  3. CISPLATIN. [Suspect]
     Active Substance: CISPLATIN
     Indication: NON-SMALL CELL LUNG CANCER
     Dosage: 75 MG/M2, CYCLICAL
     Route: 065

REACTIONS (1)
  - Cardiac failure [Fatal]
